FAERS Safety Report 11862488 (Version 1)
Quarter: 2015Q4

REPORT INFORMATION
  Report Type: Spontaneous
  Country: US (occurrence: US)
  Receive Date: 20151223
  Receipt Date: 20151223
  Transmission Date: 20160305
  Serious: Yes (Other)
  Sender: FDA-Public Use
  Company Number: US-CIPLA LTD.-2015US09433

PATIENT

DRUGS (5)
  1. ABT-751 [Suspect]
     Active Substance: INVESTIGATIONAL PRODUCT
     Indication: COLORECTAL CANCER
     Dosage: 150 MG, QD AS MONOTHERAPY FROM DAY-14 TO DAY-8 DURING THE LEAD-IN PERIOD
     Route: 048
  2. ABT-751 [Suspect]
     Active Substance: INVESTIGATIONAL PRODUCT
     Dosage: 150 MG, QD ON DAYS 1 TO 14
     Route: 048
  3. DEXAMETHASONE. [Suspect]
     Active Substance: DEXAMETHASONE
     Indication: PROPHYLAXIS OF NAUSEA AND VOMITING
     Dosage: UNK
     Route: 065
  4. CAPECITABINE. [Suspect]
     Active Substance: CAPECITABINE
     Indication: COLORECTAL CANCER
     Dosage: 2000 MG/M2, DIVIDED INTO TWICE DAILY DOSING ON DAYS 1 TO 14
     Route: 048
  5. IRINOTECAN [Suspect]
     Active Substance: IRINOTECAN
     Indication: COLORECTAL CANCER
     Dosage: 250 MG/M2, OVER TWO HOURS ON DAY 1
     Route: 042

REACTIONS (3)
  - Hypokalaemia [Unknown]
  - Gastrointestinal toxicity [Unknown]
  - Alanine aminotransferase increased [Recovering/Resolving]
